FAERS Safety Report 6599725-1 (Version None)
Quarter: 2010Q1

REPORT INFORMATION
  Report Type: 
  Country: None (occurrence: None)
  Receive Date: 20100224
  Receipt Date: 20100216
  Transmission Date: 20100710
  Serious: Yes (Hospitalization)
  Sender: FDA-Public Use
  Company Number: US-ELI_LILLY_AND_COMPANY-US201002004625

PATIENT
  Sex: Male

DRUGS (3)
  1. HUMALOG MIX 50/50 [Suspect]
     Indication: DIABETES MELLITUS
     Dosage: 45 U, EACH MORNING
     Dates: start: 20090201
  2. HUMALOG MIX 50/50 [Suspect]
     Dosage: 50 U, EACH EVENING
     Dates: start: 20090201
  3. METFORMIN HCL [Concomitant]
     Dosage: 500 MG, 2/D

REACTIONS (2)
  - CARDIAC DISORDER [None]
  - CHEST PAIN [None]
